FAERS Safety Report 7987104-1 (Version None)
Quarter: 2011Q4

REPORT INFORMATION
  Report Type: 
  Country: None (occurrence: None)
  Receive Date: 20111216
  Receipt Date: 20110316
  Transmission Date: 20120403
  Serious: No
  Sender: FDA-Public Use
  Company Number: US-BRISTOL-MYERS SQUIBB COMPANY-15612567

PATIENT
  Age: 34 Year
  Sex: Male

DRUGS (2)
  1. ADDERALL XR 10 [Concomitant]
  2. ABILIFY [Suspect]
     Indication: ATTENTION DEFICIT/HYPERACTIVITY DISORDER
     Route: 048

REACTIONS (2)
  - AKATHISIA [None]
  - FEELING ABNORMAL [None]
